FAERS Safety Report 24859829 (Version 2)
Quarter: 2025Q1

REPORT INFORMATION
  Report Type: Report from Study
  Country: CA (occurrence: CA)
  Receive Date: 20250119
  Receipt Date: 20250213
  Transmission Date: 20250409
  Serious: Yes (Death, Hospitalization)
  Sender: ABBVIE
  Company Number: CA-ABBVIE-6092038

PATIENT
  Age: 74 Year
  Sex: Male

DRUGS (2)
  1. LUPRON [Suspect]
     Active Substance: LEUPROLIDE ACETATE
     Indication: Prostate cancer
     Route: 030
     Dates: start: 20230524, end: 20240926
  2. DOCETAXEL [Concomitant]
     Active Substance: DOCETAXEL
     Indication: Product used for unknown indication

REACTIONS (4)
  - Death [Fatal]
  - Confusional state [Unknown]
  - Hypoventilation [Unknown]
  - Chest pain [Unknown]

NARRATIVE: CASE EVENT DATE: 20241031
